FAERS Safety Report 5089118-0 (Version None)
Quarter: 2006Q3

REPORT INFORMATION
  Report Type: 
  Country: None (occurrence: None)
  Receive Date: 20060825
  Receipt Date: 20060822
  Transmission Date: 20061208
  Serious: Yes (Death)
  Sender: FDA-Public Use
  Company Number: NL-BOEHRINGER INGELHEIM PHARMACEUTICALS, INC.-2006-BP-09879YA

PATIENT
  Sex: Male
  Weight: 70 kg

DRUGS (2)
  1. OMNIC OCAS ORODISPERSABLE CR [Suspect]
     Indication: BENIGN PROSTATIC HYPERPLASIA
     Route: 048
     Dates: start: 20040204
  2. CELEBREX [Suspect]
     Indication: OSTEOARTHRITIS
     Route: 048
     Dates: start: 20041013

REACTIONS (2)
  - OSTEOARTHRITIS [None]
  - SUDDEN DEATH [None]
